FAERS Safety Report 12053076 (Version 1)
Quarter: 2016Q1

REPORT INFORMATION
  Report Type: Spontaneous
  Country: JP (occurrence: JP)
  Receive Date: 20160209
  Receipt Date: 20160209
  Transmission Date: 20160526
  Serious: Yes (Hospitalization, Other)
  Sender: FDA-Public Use
  Company Number: JP-ASTRAZENECA-2016SE13435

PATIENT
  Age: 75 Year
  Sex: Female

DRUGS (1)
  1. IRESSA [Suspect]
     Active Substance: GEFITINIB
     Indication: LUNG ADENOCARCINOMA
     Route: 048

REACTIONS (3)
  - Malignant neoplasm progression [Unknown]
  - Atelectasis [Unknown]
  - Pleural effusion [Unknown]
